FAERS Safety Report 8534911-2 (Version None)
Quarter: 2012Q3

REPORT INFORMATION
  Report Type: 
  Country: None (occurrence: None)
  Receive Date: 20120724
  Receipt Date: 20120713
  Transmission Date: 20120928
  Serious: Yes (Hospitalization)
  Sender: FDA-Public Use
  Company Number: FR-ROCHE-1088390

PATIENT
  Age: 43 Year
  Sex: Male

DRUGS (10)
  1. MABTHERA [Suspect]
     Indication: PRODUCT USED FOR UNKNOWN INDICATION
     Dosage: 1 INFUSION
     Route: 042
     Dates: start: 20120112, end: 20120309
  2. CELLCEPT [Suspect]
     Indication: IMMUNOSUPPRESSION
     Route: 048
     Dates: start: 20120214
  3. SOLIRIS [Concomitant]
     Route: 042
     Dates: start: 20120313
  4. PHENOXYMETHYL PENICILLIN [Suspect]
     Indication: PRODUCT USED FOR UNKNOWN INDICATION
     Route: 048
     Dates: start: 20120313, end: 20120615
  5. ESCITALOPRAM [Concomitant]
     Route: 048
     Dates: end: 20120613
  6. PROGRAF [Suspect]
     Indication: IMMUNOSUPPRESSION
     Route: 048
     Dates: start: 20120214
  7. VALGANCICLOVIR [Suspect]
     Indication: PRODUCT USED FOR UNKNOWN INDICATION
     Route: 048
     Dates: start: 20120214, end: 20120613
  8. MABTHERA [Suspect]
     Route: 042
     Dates: start: 20120309
  9. LAMICTAL [Concomitant]
     Route: 048
  10. OMEPRAZOLE [Concomitant]
     Route: 048
     Dates: start: 20120214

REACTIONS (1)
  - AGRANULOCYTOSIS [None]
